FAERS Safety Report 7360788-7 (Version None)
Quarter: 2011Q1

REPORT INFORMATION
  Report Type: 
  Country: None (occurrence: None)
  Receive Date: 20110318
  Receipt Date: 20110314
  Transmission Date: 20110831
  Serious: Yes (Life-Threatening, Hospitalization)
  Sender: FDA-Public Use
  Company Number: NL-GENZYME-CAMP-1001327

PATIENT
  Sex: Female
  Weight: 56 kg

DRUGS (12)
  1. CYCLOPHOSPHAMIDE [Suspect]
     Dosage: UNK
     Route: 065
  2. CYCLOPHOSPHAMIDE [Suspect]
     Dosage: UNK
     Route: 065
  3. CAMPATH [Suspect]
     Dosage: UNK
     Route: 065
  4. CAMPATH [Suspect]
     Dosage: UNK
     Route: 065
  5. FLUDARA [Suspect]
     Dosage: UNK
     Route: 065
  6. FLUDARA [Suspect]
     Dosage: UNK
     Route: 065
  7. CYCLOPHOSPHAMIDE [Suspect]
     Dosage: UNK
     Route: 065
  8. CAMPATH [Suspect]
     Indication: CHRONIC LYMPHOCYTIC LEUKAEMIA
     Dosage: 30 UNK, UNK
     Route: 058
     Dates: start: 20101230, end: 20101230
  9. CYCLOPHOSPHAMIDE [Suspect]
     Indication: CHRONIC LYMPHOCYTIC LEUKAEMIA
     Dosage: 400 UNK, UNK
     Route: 048
     Dates: start: 20101230, end: 20110101
  10. CAMPATH [Suspect]
     Dosage: UNK
     Route: 065
  11. FLUDARA [Suspect]
     Indication: CHRONIC LYMPHOCYTIC LEUKAEMIA
     Dosage: 60 UNK, UNK
     Route: 048
     Dates: start: 20101230, end: 20110101
  12. FLUDARA [Suspect]
     Dosage: UNK
     Route: 065

REACTIONS (2)
  - MENINGITIS LISTERIA [None]
  - BACTERAEMIA [None]
